FAERS Safety Report 15020303 (Version 6)
Quarter: 2018Q3

REPORT INFORMATION
  Report Type: Spontaneous
  Country: JP (occurrence: JP)
  Receive Date: 20180618
  Receipt Date: 20180802
  Transmission Date: 20181010
  Serious: Yes (Death, Hospitalization, Other)
  Sender: FDA-Public Use
  Company Number: JP-BRISTOL-MYERS SQUIBB COMPANY-BMS-2017-112048

PATIENT
  Age: 64 Year
  Sex: Male

DRUGS (1)
  1. OPDIVO [Suspect]
     Active Substance: NIVOLUMAB
     Indication: NON-SMALL CELL LUNG CANCER
     Dosage: 180 MG, UNK
     Route: 041
     Dates: start: 20160406, end: 20160518

REACTIONS (7)
  - Hyponatraemia [Not Recovered/Not Resolved]
  - Malignant neoplasm progression [Fatal]
  - Renal impairment [Recovering/Resolving]
  - Prescribed underdose [Unknown]
  - Respiratory failure [Unknown]
  - Wheezing [Unknown]
  - Interstitial lung disease [Unknown]

NARRATIVE: CASE EVENT DATE: 20160520
